FAERS Safety Report 22398186 (Version 2)
Quarter: 2023Q2

REPORT INFORMATION
  Report Type: Spontaneous
  Country: CN (occurrence: CN)
  Receive Date: 20230602
  Receipt Date: 20230615
  Transmission Date: 20230721
  Serious: Yes (Other)
  Sender: FDA-Public Use
  Company Number: CN-BAXTER-2023BAX022932

PATIENT
  Age: 5 Year
  Sex: Female

DRUGS (7)
  1. CYCLOPHOSPHAMIDE [Suspect]
     Active Substance: CYCLOPHOSPHAMIDE
     Indication: Hodgkin^s disease
     Dosage: 2G (AROUND 50 MG/KG) FOR ONLY ONE DAY, CYCLE A - COPP/ABV - CYCLE C - CYCLE A-COPP/ABV - CYCLE C FOR
     Route: 042
  2. BLEOMYCIN [Suspect]
     Active Substance: BLEOMYCIN SULFATE
     Indication: Hodgkin^s disease
     Dosage: CYCLE A - COPP/ABV - CYCLE C - CYCLE A-COPP/ABV - CYCLE C FOR 6 CYCLES
     Route: 065
     Dates: start: 2015
  3. VINBLASTINE [Suspect]
     Active Substance: VINBLASTINE
     Indication: Hodgkin^s disease
     Dosage: ABV
     Route: 065
     Dates: start: 2015
  4. PROCARBAZINE [Suspect]
     Active Substance: PROCARBAZINE
     Indication: Hodgkin^s disease
     Dosage: COPP
     Route: 065
     Dates: start: 2015
  5. PREDNISONE [Suspect]
     Active Substance: PREDNISONE
     Indication: Hodgkin^s disease
     Dosage: COPP
     Route: 065
     Dates: start: 2015
  6. VINCRISTINE [Suspect]
     Active Substance: VINCRISTINE
     Indication: Hodgkin^s disease
     Dosage: COPP
     Route: 065
     Dates: start: 2015
  7. DOXORUBICIN [Suspect]
     Active Substance: DOXORUBICIN
     Indication: Hodgkin^s disease
     Dosage: ABV
     Route: 065
     Dates: start: 2015

REACTIONS (3)
  - Febrile convulsion [Unknown]
  - Lymphopenia [Recovered/Resolved]
  - Respiratory tract infection [Unknown]

NARRATIVE: CASE EVENT DATE: 20150101
